FAERS Safety Report 7717665-9 (Version None)
Quarter: 2011Q3

REPORT INFORMATION
  Report Type: 
  Country: None (occurrence: None)
  Receive Date: 20110830
  Receipt Date: 20110825
  Transmission Date: 20111222
  Serious: Yes (Hospitalization)
  Sender: FDA-Public Use
  Company Number: JP-SANOFI-AVENTIS-2011SA054543

PATIENT
  Age: 69 Year
  Sex: Female
  Weight: 43.8 kg

DRUGS (9)
  1. INDAPAMIDE [Suspect]
     Route: 048
     Dates: start: 20110416
  2. INDAPAMIDE [Suspect]
     Indication: BLOOD PRESSURE INADEQUATELY CONTROLLED
     Route: 048
     Dates: start: 20110402, end: 20110416
  3. ADALAT [Concomitant]
     Dates: start: 20110305
  4. LANSOPRAZOLE [Concomitant]
     Dates: start: 20110207
  5. ALISKIREN [Concomitant]
     Dates: start: 20110416
  6. DEPAS [Concomitant]
     Dates: start: 20110420
  7. MICARDIS [Concomitant]
     Dates: start: 20110402
  8. LENDORMIN [Concomitant]
     Dates: start: 20110325
  9. EPLERENONE [Concomitant]
     Dates: start: 20110420

REACTIONS (5)
  - HEADACHE [None]
  - VOMITING [None]
  - BLOOD PRESSURE INCREASED [None]
  - HYPOAESTHESIA [None]
  - HYPONATRAEMIA [None]
